FAERS Safety Report 5712113-2 (Version None)
Quarter: 2008Q2

REPORT INFORMATION
  Report Type: 
  Country: None (occurrence: None)
  Receive Date: 20080418
  Receipt Date: 20080207
  Transmission Date: 20081010
  Serious: Yes (Other)
  Sender: FDA-Public Use
  Company Number: TRP_05640_2008

PATIENT
  Sex: Female
  Weight: 78.0187 kg

DRUGS (10)
  1. RIBAVIRIN [Suspect]
     Indication: HEPATITIS C
     Dosage: (600 MG [200 MG QAM AND 400 MG QPM] ORAL), (200 MG TID ORAL)
     Route: 048
     Dates: start: 20060101, end: 20060706
  2. RIBAVIRIN [Suspect]
     Indication: HEPATITIS C
     Dosage: (600 MG [200 MG QAM AND 400 MG QPM] ORAL), (200 MG TID ORAL)
     Route: 048
     Dates: start: 20060310
  3. INFERGEN/INTERFERON ALFACON-1/VALEANT 15 UG [Suspect]
     Indication: HEPATITIS C
     Dosage: (15 UG QD SUBCUTANEOUS), (15 UG QD SUBCUTANEOUS)
     Route: 058
     Dates: start: 20060310, end: 20060405
  4. INFERGEN/INTERFERON ALFACON-1/VALEANT 15 UG [Suspect]
     Indication: HEPATITIS C
     Dosage: (15 UG QD SUBCUTANEOUS), (15 UG QD SUBCUTANEOUS)
     Route: 058
     Dates: start: 20060101, end: 20060706
  5. HYDROCHLOROTHIAZIDE [Concomitant]
  6. AVAPRO [Concomitant]
  7. PROCRIT [Concomitant]
  8. IRON [Concomitant]
  9. SILYMARIN [Concomitant]
  10. 'AVAPRIL' [Concomitant]

REACTIONS (9)
  - BLOOD IRON INCREASED [None]
  - FATIGUE [None]
  - HAEMOLYTIC ANAEMIA [None]
  - HEADACHE [None]
  - PAIN [None]
  - PYREXIA [None]
  - STRESS [None]
  - TRANSFUSION REACTION [None]
  - WEIGHT DECREASED [None]
